FAERS Safety Report 10489780 (Version 1)
Quarter: 2014Q3

REPORT INFORMATION
  Report Type: Spontaneous
  Country: US (occurrence: None)
  Receive Date: 20140815
  Receipt Date: 20140815
  Transmission Date: 20150326
  Serious: Yes (Other)
  Sender: FDA-Public Use
  Company Number: ADR-2013-01835

PATIENT
  Age: 58 Year
  Sex: Male

DRUGS (4)
  1. BACLOFEN INTRATHECAL [Suspect]
     Active Substance: BACLOFEN
     Indication: MUSCLE SPASTICITY
  2. PRIALT [Suspect]
     Active Substance: ZICONOTIDE ACETATE
  3. DILAUDID(HYDROMORPHONE) [Concomitant]
  4. BUPIVACAINE, 0.75% IN DEXTROSE 8.25% 2 ML AMPULE, HOSPIRA [Concomitant]
     Active Substance: BUPIVACAINE\DEXTROSE

REACTIONS (5)
  - Fall [None]
  - Urinary retention [None]
  - Blood pressure increased [None]
  - Drug withdrawal syndrome [None]
  - Muscle spasticity [None]
